FAERS Safety Report 7386585-4 (Version None)
Quarter: 2011Q1

REPORT INFORMATION
  Report Type: 
  Country: None (occurrence: None)
  Receive Date: 20110331
  Receipt Date: 20110328
  Transmission Date: 20110831
  Serious: Yes (Other)
  Sender: FDA-Public Use
  Company Number: FI-ROCHE-760701

PATIENT
  Sex: Female

DRUGS (2)
  1. ROACTEMRA [Suspect]
     Indication: RHEUMATOID ARTHRITIS
     Dosage: START DATE: APPROXIMATE 1 YEAR AGO, DOSE REDUCED.
     Route: 042
  2. ROACTEMRA [Suspect]
     Route: 042

REACTIONS (2)
  - MYELODYSPLASTIC SYNDROME [None]
  - ANAEMIA [None]
